FAERS Safety Report 5631443-6 (Version None)
Quarter: 2008Q1

REPORT INFORMATION
  Report Type: 
  Country: None (occurrence: None)
  Receive Date: 20080214
  Receipt Date: 20080204
  Transmission Date: 20080703
  Serious: Yes (Death)
  Sender: FDA-Public Use
  Company Number: 2008-01149

PATIENT
  Age: 50 Year
  Sex: Female

DRUGS (9)
  1. FUROSEMIDE (WATSON LABORATORIES)(FUROSEMIDE) TABLET, 20MG [Suspect]
  2. QUINAPRIL HYDROCHLORIDE [Suspect]
  3. PRAVASTATIN SODIUM [Suspect]
  4. BACLOFEN [Suspect]
  5. MORPHINE SULFATE [Suspect]
  6. BENZODIAZEPINE DERIVATIVES() [Suspect]
  7. THYROID PREPARATION() [Suspect]
  8. PREGABALINO [Suspect]
  9. THIAZOLIDINEDIONE () [Suspect]

REACTIONS (1)
  - DEATH [None]
